FAERS Safety Report 20042963 (Version 3)
Quarter: 2023Q1

REPORT INFORMATION
  Report Type: Spontaneous
  Country: US (occurrence: None)
  Receive Date: 20211108
  Receipt Date: 20230117
  Transmission Date: 20230418
  Serious: No
  Sender: FDA-Public Use
  Company Number: 2021A790691

PATIENT
  Sex: Female

DRUGS (1)
  1. ZOMIG [Suspect]
     Active Substance: ZOLMITRIPTAN
     Indication: Migraine
     Dosage: TOOK DISSOLVABLE TABLET TWICE
     Route: 048

REACTIONS (3)
  - Vomiting [Recovered/Resolved]
  - Drug ineffective [Unknown]
  - Product taste abnormal [Unknown]
